FAERS Safety Report 8666639 (Version 2)
Quarter: 2013Q4

REPORT INFORMATION
  Report Type: Spontaneous
  Country: US (occurrence: US)
  Receive Date: 20120716
  Receipt Date: 20131101
  Transmission Date: 20140711
  Serious: No
  Sender: FDA-Public Use
  Company Number: US-009507513-1207USA002409

PATIENT
  Sex: Female

DRUGS (8)
  1. PEGINTRON [Suspect]
     Dosage: 120 MCG/0.5 ML
     Route: 058
  2. RIBAPAK [Suspect]
     Dosage: UNK UNK, QD
  3. TELAPREVIR [Suspect]
     Dosage: 375 MG, UNK
  4. PREMARIN [Concomitant]
     Dosage: 0.3 MG, UNK
  5. AMLODIPINE [Concomitant]
     Dosage: 2.5 MG, UNK
  6. LYRICA [Concomitant]
     Dosage: 100 MG, UNK
  7. CALCIUM (UNSPECIFIED) [Concomitant]
     Dosage: 500 UNK, UNK
  8. CYANOCOBALAMIN [Concomitant]

REACTIONS (1)
  - Anaemia [Unknown]
